FAERS Safety Report 14529417 (Version 1)
Quarter: 2018Q1

REPORT INFORMATION
  Report Type: Spontaneous
  Country: US (occurrence: US)
  Receive Date: 20180213
  Receipt Date: 20180213
  Transmission Date: 20180509
  Serious: Yes (Other)
  Sender: FDA-Public Use
  Company Number: None

PATIENT
  Age: 28 Year
  Sex: Male
  Weight: 59.9 kg

DRUGS (1)
  1. ATORVASTATIN 40MG VERSUS PLACEBO [Suspect]
     Active Substance: ATORVASTATIN
     Indication: CARDIOTOXICITY
     Route: 048
     Dates: start: 20180113

REACTIONS (1)
  - Neutrophil count decreased [None]

NARRATIVE: CASE EVENT DATE: 20180129
